FAERS Safety Report 19885091 (Version 1)
Quarter: 2021Q3

REPORT INFORMATION
  Report Type: Spontaneous
  Country: IT (occurrence: IT)
  Receive Date: 20210927
  Receipt Date: 20210927
  Transmission Date: 20211014
  Serious: Yes (Hospitalization)
  Sender: FDA-Public Use
  Company Number: IT-SUN PHARMACEUTICAL INDUSTRIES LTD-2021RR-312465

PATIENT
  Age: 47 Year
  Sex: Female

DRUGS (3)
  1. PARACETAMOL [Suspect]
     Active Substance: ACETAMINOPHEN
     Indication: DRUG ABUSE
     Dosage: 1 DOSAGE FORM, IN TOTAL
     Route: 048
     Dates: start: 20210612, end: 20210612
  2. LORAZEPAM. [Suspect]
     Active Substance: LORAZEPAM
     Indication: DRUG ABUSE
     Dosage: 15 DOSAGE FORM, IN TOTAL
     Route: 048
     Dates: start: 20210612, end: 20210612
  3. QUETIAPINE FUMARATE. [Suspect]
     Active Substance: QUETIAPINE FUMARATE
     Indication: DRUG ABUSE
     Dosage: 15 DOSAGE FORM, IN TOTAL
     Route: 048
     Dates: start: 20210612, end: 20210612

REACTIONS (4)
  - Hypokinesia [Recovering/Resolving]
  - Sopor [Recovering/Resolving]
  - Bradyphrenia [Recovering/Resolving]
  - Drug abuse [Recovering/Resolving]

NARRATIVE: CASE EVENT DATE: 20210612
